FAERS Safety Report 12381269 (Version 4)
Quarter: 2016Q4

REPORT INFORMATION
  Report Type: Report from Study
  Country: CO (occurrence: CO)
  Receive Date: 20160518
  Receipt Date: 20161226
  Transmission Date: 20170207
  Serious: Yes (Other)
  Sender: FDA-Public Use
  Company Number: PHHY2016CO067191

PATIENT
  Age: 35 Year
  Sex: Female
  Weight: 48 kg

DRUGS (2)
  1. REVOLADE [Suspect]
     Active Substance: ELTROMBOPAG
     Indication: IMMUNE THROMBOCYTOPENIC PURPURA
     Dosage: 25 MG, Q12H (FROM MONDAY TO FRIDAYS, REST ON WEEKENDS)
     Route: 048
     Dates: start: 20131214
  2. REVOLADE [Suspect]
     Active Substance: ELTROMBOPAG
     Dosage: 1 DF, UNK
     Route: 048

REACTIONS (6)
  - Blindness [Unknown]
  - Dizziness [Unknown]
  - Psychiatric symptom [Unknown]
  - Amnesia [Unknown]
  - Spider vein [Unknown]
  - Abdominal discomfort [Unknown]

NARRATIVE: CASE EVENT DATE: 20151110
